FAERS Safety Report 6124624-9 (Version None)
Quarter: 2009Q1

REPORT INFORMATION
  Report Type: 
  Country: None (occurrence: None)
  Receive Date: 20090319
  Receipt Date: 20090316
  Transmission Date: 20090719
  Serious: Yes (Other)
  Sender: FDA-Public Use
  Company Number: B0552959A

PATIENT
  Age: 18 Year
  Sex: Female

DRUGS (1)
  1. TAGAMET [Suspect]
     Route: 065
     Dates: start: 20081128, end: 20081130

REACTIONS (3)
  - ABDOMINAL DISCOMFORT [None]
  - ABDOMINAL PAIN UPPER [None]
  - PRODUCT QUALITY ISSUE [None]
